FAERS Safety Report 23356182 (Version 1)
Quarter: 2024Q1

REPORT INFORMATION
  Report Type: Spontaneous
  Country: GB (occurrence: GB)
  Receive Date: 20240102
  Receipt Date: 20240102
  Transmission Date: 20240410
  Serious: Yes (Other)
  Sender: FDA-Public Use
  Company Number: None

PATIENT
  Age: 54 Year
  Sex: Male
  Weight: 80 kg

DRUGS (6)
  1. ESCITALOPRAM [Suspect]
     Active Substance: ESCITALOPRAM OXALATE
     Indication: Product used for unknown indication
     Route: 065
     Dates: start: 20231204, end: 20231220
  2. SERTRALINE [Concomitant]
     Active Substance: SERTRALINE HYDROCHLORIDE
     Indication: Product used for unknown indication
     Route: 065
     Dates: start: 20230920, end: 20231130
  3. NYSTATIN [Concomitant]
     Active Substance: NYSTATIN
     Indication: Product used for unknown indication
     Dosage: TO BE DROPPED INTO THE MOUTH
     Route: 065
     Dates: start: 20231017, end: 20231129
  4. VENLAFAXINE [Concomitant]
     Active Substance: VENLAFAXINE HYDROCHLORIDE
     Indication: Product used for unknown indication
     Dosage: TAKE ONE TABLET EVERY MORNING FOR 2 WEEKS, AND THEN 2 TABS EVERY MORNING?ASPIRE PHARMA VENLAFAXIN...
     Route: 065
     Dates: start: 20231101, end: 20231214
  5. VENLAFAXINE [Concomitant]
     Active Substance: VENLAFAXINE HYDROCHLORIDE
     Indication: Product used for unknown indication
     Dosage: TAKE ONE TABLET EVERY MORNING FOR 2 WEEKS, AND THEN 2 TABS EVERY MORNING
     Route: 065
     Dates: start: 20231101, end: 20231214
  6. COMIRNATY (TOZINAMERAN) [Concomitant]
     Active Substance: TOZINAMERAN
     Indication: Product used for unknown indication
     Dosage: OMICRON XBB.1.5
     Route: 030
     Dates: start: 20231014, end: 20231014

REACTIONS (2)
  - Suicidal ideation [Unknown]
  - Flat affect [Unknown]

NARRATIVE: CASE EVENT DATE: 20231219
